FAERS Safety Report 24771658 (Version 1)
Quarter: 2024Q4

REPORT INFORMATION
  Report Type: Spontaneous
  Country: ES (occurrence: ES)
  Receive Date: 20241224
  Receipt Date: 20241224
  Transmission Date: 20250114
  Serious: Yes (Death, Other)
  Sender: BIOVITRUM
  Company Number: ES-BIOVITRUM-2024-ES-015465

PATIENT
  Sex: Female
  Weight: 12 kg

DRUGS (17)
  1. EMAPALUMAB [Suspect]
     Active Substance: EMAPALUMAB
     Indication: Familial haemophagocytic lymphohistiocytosis
     Dates: start: 20241129
  2. EMAPALUMAB [Suspect]
     Active Substance: EMAPALUMAB
     Dates: start: 20241201
  3. EMAPALUMAB [Suspect]
     Active Substance: EMAPALUMAB
     Dates: start: 20241202
  4. EMAPALUMAB [Suspect]
     Active Substance: EMAPALUMAB
     Dates: start: 20241203, end: 20241203
  5. EMAPALUMAB [Suspect]
     Active Substance: EMAPALUMAB
     Dates: start: 20241130
  6. EPINEPHRINE [Concomitant]
     Active Substance: EPINEPHRINE
     Indication: Product used for unknown indication
  7. NITROGLYCERIN [Concomitant]
     Active Substance: NITROGLYCERIN
     Indication: Product used for unknown indication
  8. ACYCLOVIR [Concomitant]
     Active Substance: ACYCLOVIR
     Indication: Product used for unknown indication
  9. MEROPENEM [Concomitant]
     Active Substance: MEROPENEM
     Indication: Product used for unknown indication
  10. MICAFUNGIN [Concomitant]
     Active Substance: MICAFUNGIN SODIUM
     Indication: Product used for unknown indication
  11. VANCOMYCIN [Concomitant]
     Active Substance: VANCOMYCIN
     Indication: Product used for unknown indication
  12. AMPHOTERICIN B [Concomitant]
     Active Substance: AMPHOTERICIN B
     Indication: Product used for unknown indication
  13. VITAMIN K [Concomitant]
     Active Substance: PHYTONADIONE
     Indication: Product used for unknown indication
  14. DEXAMETHASONE [Concomitant]
     Active Substance: DEXAMETHASONE
     Indication: Product used for unknown indication
  15. HUMAN IMMUNOGLOBULIN G [Concomitant]
     Active Substance: HUMAN IMMUNOGLOBULIN G
     Indication: Product used for unknown indication
  16. PANTOPRAZOLE [Concomitant]
     Active Substance: PANTOPRAZOLE
     Indication: Product used for unknown indication
  17. PAROMOMYCIN [Concomitant]
     Active Substance: PAROMOMYCIN
     Indication: Product used for unknown indication

REACTIONS (8)
  - Immunodeficiency [Unknown]
  - Haemophagocytic lymphohistiocytosis [Unknown]
  - Multiple organ dysfunction syndrome [Unknown]
  - Candida infection [Unknown]
  - Peripheral ischaemia [Unknown]
  - Shock [Fatal]
  - Brain death [Fatal]
  - Vaccination complication [Unknown]

NARRATIVE: CASE EVENT DATE: 20241204
